FAERS Safety Report 23942501 (Version 2)
Quarter: 2024Q2

REPORT INFORMATION
  Report Type: Report from Study
  Country: US (occurrence: US)
  Receive Date: 20240605
  Receipt Date: 20240626
  Transmission Date: 20240716
  Serious: Yes (Hospitalization, Other)
  Sender: FDA-Public Use
  Company Number: US-ROCHE-3574953

PATIENT
  Age: 69 Year
  Sex: Female
  Weight: 55.33 kg

DRUGS (3)
  1. ENSPRYNG [Suspect]
     Active Substance: SATRALIZUMAB-MWGE
     Indication: Neuromyelitis optica spectrum disorder
     Route: 065
     Dates: start: 202403
  2. ENSPRYNG [Suspect]
     Active Substance: SATRALIZUMAB-MWGE
  3. ENSPRYNG [Suspect]
     Active Substance: SATRALIZUMAB-MWGE

REACTIONS (6)
  - Fall [Recovered/Resolved]
  - Pneumonia [Recovered/Resolved]
  - Osteoporosis [Not Recovered/Not Resolved]
  - Hip fracture [Recovering/Resolving]
  - Oxygen consumption increased [Not Recovered/Not Resolved]
  - Skin discolouration [Unknown]

NARRATIVE: CASE EVENT DATE: 20240517
